FAERS Safety Report 18972923 (Version 5)
Quarter: 2021Q3

REPORT INFORMATION
  Report Type: Report from Study
  Country: None (occurrence: CO)
  Receive Date: 20210305
  Receipt Date: 20210903
  Transmission Date: 20211014
  Serious: Yes (Hospitalization, Other)
  Sender: FDA-Public Use
  Company Number: CO-ABBVIE-21K-036-3751519-00

PATIENT
  Age: 73 Year
  Sex: Male
  Weight: 65 kg

DRUGS (2)
  1. HUMIRA [Suspect]
     Active Substance: ADALIMUMAB
     Indication: ANKYLOSING SPONDYLITIS
     Route: 058
     Dates: start: 20150918, end: 20201215
  2. HUMIRA [Suspect]
     Active Substance: ADALIMUMAB
     Indication: ANKYLOSING SPONDYLITIS
     Route: 058
     Dates: start: 20150918

REACTIONS (26)
  - Pneumonia [Recovering/Resolving]
  - COVID-19 [Recovered/Resolved with Sequelae]
  - Oxygen consumption increased [Unknown]
  - Chronic obstructive pulmonary disease [Recovering/Resolving]
  - Asphyxia [Recovering/Resolving]
  - Asthenia [Recovering/Resolving]
  - Immunodeficiency [Unknown]
  - Pyrexia [Unknown]
  - Lung disorder [Recovering/Resolving]
  - Vertigo [Recovering/Resolving]
  - Cardiac disorder [Recovering/Resolving]
  - Myocarditis bacterial [Not Recovered/Not Resolved]
  - Sleep apnoea syndrome [Recovering/Resolving]
  - Liver disorder [Unknown]
  - Insomnia [Recovered/Resolved]
  - Insomnia [Recovering/Resolving]
  - Discomfort [Unknown]
  - Renal disorder [Unknown]
  - Gait disturbance [Recovering/Resolving]
  - Weight decreased [Recovering/Resolving]
  - Sleep disorder [Recovering/Resolving]
  - Oxygen saturation decreased [Recovering/Resolving]
  - Heart rate increased [Recovering/Resolving]
  - Pulmonary oedema [Recovering/Resolving]
  - Malaise [Recovered/Resolved]
  - Immune system disorder [Not Recovered/Not Resolved]

NARRATIVE: CASE EVENT DATE: 202012
